FAERS Safety Report 6980354-2 (Version None)
Quarter: 2010Q3

REPORT INFORMATION
  Report Type: 
  Country: None (occurrence: None)
  Receive Date: 20100914
  Receipt Date: 20100906
  Transmission Date: 20110219
  Serious: Yes (Hospitalization)
  Sender: FDA-Public Use
  Company Number: KR-BAYER-201038722GPV

PATIENT
  Age: 63 Year
  Sex: Male

DRUGS (10)
  1. NEXAVAR [Suspect]
     Indication: HEPATIC NEOPLASM MALIGNANT
     Dosage: TOTAL DAILY DOSE: 800 MG  UNIT DOSE: 200 MG
     Route: 048
     Dates: start: 20100521, end: 20100601
  2. NEXAVAR [Suspect]
     Dosage: TOTAL DAILY DOSE: 800 MG  UNIT DOSE: 200 MG
     Route: 048
     Dates: start: 20100701, end: 20100701
  3. HEPABIG / HUMAN ANTI-HEPATITIS B IMMUNOGLOBULIN [Concomitant]
     Indication: HEPATITIS B
     Route: 030
  4. MYFORTIC [Concomitant]
     Indication: LIVER TRANSPLANT
     Route: 048
  5. PROGRAF [Concomitant]
     Indication: LIVER TRANSPLANT
  6. NOVOLET-N / HUMAN INSULIN [Concomitant]
     Indication: BLOOD GLUCOSE INCREASED
     Route: 058
  7. FAMOTIDINE [Concomitant]
     Route: 048
  8. UNSPECIFIED MEDICATION [Concomitant]
     Indication: GASTRIC DISORDER
     Route: 048
  9. BARACLUDE [Concomitant]
     Dosage: 0.5 MG
     Route: 048
  10. CETRIN [Concomitant]
     Route: 048

REACTIONS (3)
  - AGEUSIA [None]
  - BLISTER [None]
  - TONGUE DISORDER [None]
